FAERS Safety Report 9019753 (Version 1)
Quarter: 2013Q1

REPORT INFORMATION
  Report Type: Spontaneous
  Country: US (occurrence: US)
  Receive Date: 20130119
  Receipt Date: 20130119
  Transmission Date: 20140127
  Serious: Yes (Death, Other)
  Sender: FDA-Public Use
  Company Number: US-UCBSA-075100

PATIENT
  Age: 49 Year
  Sex: Female

DRUGS (4)
  1. ALPRAZOLAM [Suspect]
     Dosage: INGST+UNK
  2. METHADONE [Suspect]
     Dosage: INGST+UNK
  3. AMPHETAMINE [Suspect]
     Dosage: INGST+UNK
  4. VENLAFAXINE [Suspect]
     Dosage: INGST+UNK

REACTIONS (1)
  - Drug abuse [Fatal]
